FAERS Safety Report 8268432-1 (Version None)
Quarter: 2012Q1

REPORT INFORMATION
  Report Type: 
  Country: None (occurrence: None)
  Receive Date: 20120327
  Receipt Date: 20100104
  Transmission Date: 20120608
  Serious: Yes (Hospitalization)
  Sender: FDA-Public Use
  Company Number: PHHY2010US00546

PATIENT
  Sex: Female

DRUGS (1)
  1. GLEEVEC [Suspect]
     Dosage: 400 MG/DAY, ORAL
     Route: 048
     Dates: start: 20091229

REACTIONS (2)
  - PAIN IN EXTREMITY [None]
  - CHEST PAIN [None]
